FAERS Safety Report 13592640 (Version 1)
Quarter: 2017Q2

REPORT INFORMATION
  Report Type: Spontaneous
  Country: FR (occurrence: FR)
  Receive Date: 20170530
  Receipt Date: 20170530
  Transmission Date: 20170830
  Serious: Yes (Other)
  Sender: FDA-Public Use
  Company Number: PHHY2017FR076603

PATIENT
  Sex: Male

DRUGS (1)
  1. AFINITOR [Suspect]
     Active Substance: EVEROLIMUS
     Indication: NEUROENDOCRINE TUMOUR OF THE LUNG
     Route: 065
     Dates: start: 201608

REACTIONS (3)
  - Depression [Unknown]
  - Weight decreased [Unknown]
  - Bipolar disorder [Unknown]

NARRATIVE: CASE EVENT DATE: 201701
